FAERS Safety Report 6567141-4 (Version None)
Quarter: 2010Q1

REPORT INFORMATION
  Report Type: 
  Country: None (occurrence: None)
  Receive Date: 20100202
  Receipt Date: 20100122
  Transmission Date: 20100710
  Serious: Yes (Hospitalization, Other)
  Sender: FDA-Public Use
  Company Number: BE-BAXTER-2009BH014316

PATIENT
  Age: 83 Year
  Sex: Male
  Weight: 71 kg

DRUGS (12)
  1. EXTRANEAL [Suspect]
     Indication: DIALYSIS
     Route: 033
  2. PHYSIOSOL IN PLASTIC CONTAINER [Suspect]
     Indication: DIALYSIS
     Route: 033
  3. ASAFLOW [Concomitant]
     Indication: PLATELET AGGREGATION INHIBITION
     Route: 065
  4. FUROSEMIDE [Concomitant]
     Indication: POLYURIA
     Route: 065
     Dates: end: 20090913
  5. EMCONCOR                                /BEL/ [Concomitant]
     Indication: DRUG USE FOR UNKNOWN INDICATION
     Route: 065
     Dates: end: 20090913
  6. RANITIDINE [Concomitant]
     Indication: GASTROOESOPHAGEAL REFLUX DISEASE
     Route: 065
  7. CALCIUM [Concomitant]
     Indication: MINERAL SUPPLEMENTATION
     Route: 065
  8. CORDARONE [Concomitant]
     Indication: ARRHYTHMIA PROPHYLAXIS
     Route: 065
  9. CORUNO [Concomitant]
     Indication: VASODILATION PROCEDURE
     Route: 065
     Dates: end: 20090913
  10. SINTROM [Concomitant]
     Indication: DRUG USE FOR UNKNOWN INDICATION
     Route: 065
  11. LYCOPENE [Concomitant]
     Indication: MEDICAL DIET
     Route: 065
  12. SIMVASTATIN [Concomitant]
     Indication: DRUG USE FOR UNKNOWN INDICATION
     Route: 065

REACTIONS (2)
  - CARDIAC DISORDER [None]
  - PERITONITIS [None]
